FAERS Safety Report 23020159 (Version 1)
Quarter: 2023Q4

REPORT INFORMATION
  Report Type: Other
  Country: US (occurrence: US)
  Receive Date: 20231003
  Receipt Date: 20231003
  Transmission Date: 20240109
  Serious: Yes (Hospitalization)
  Sender: FDA-Public Use
  Company Number: US-C B Fleet Co Inc-202309-US-002919

PATIENT
  Age: 16 Year
  Sex: Female

DRUGS (1)
  1. DIPHENHYDRAMINE HYDROCHLORIDE [Suspect]
     Active Substance: DIPHENHYDRAMINE HYDROCHLORIDE
     Indication: Drug abuse
     Dosage: TOOK 24 TABLETS
     Route: 048

REACTIONS (5)
  - Toxicity to various agents [Recovering/Resolving]
  - Sinus tachycardia [Unknown]
  - Agitation [Recovering/Resolving]
  - Drug abuse [None]
  - Intentional overdose [None]
